FAERS Safety Report 12404296 (Version 5)
Quarter: 2016Q3

REPORT INFORMATION
  Report Type: Spontaneous
  Country: JP (occurrence: JP)
  Receive Date: 20160525
  Receipt Date: 20160915
  Transmission Date: 20161109
  Serious: Yes (Hospitalization)
  Sender: FDA-Public Use
  Company Number: JP-DSJP-DSJ-2016-117378

PATIENT

DRUGS (5)
  1. CILNIDIPINE [Concomitant]
     Active Substance: CILNIDIPINE
     Indication: HYPERTENSION
     Dosage: 10 MG, QD
     Route: 048
     Dates: start: 20071208
  2. TAURINE [Concomitant]
     Active Substance: TAURINE
     Indication: HYPERTENSION
     Dosage: 1.0 G, TID
     Route: 048
     Dates: start: 20070925, end: 20160208
  3. LIXIANA TABLETS [Suspect]
     Active Substance: EDOXABAN TOSILATE MONOHYDRATE
     Indication: ATRIAL FIBRILLATION
     Dosage: 30 MG, QD
     Route: 048
     Dates: start: 20160127, end: 20160208
  4. TAURINE [Concomitant]
     Active Substance: TAURINE
     Indication: CARDIAC FAILURE
  5. GLIBENCLAMIDE [Concomitant]
     Active Substance: GLYBURIDE
     Indication: DIABETES MELLITUS
     Dosage: 1.25 MG, QD
     Route: 048
     Dates: start: 20070925

REACTIONS (1)
  - Organising pneumonia [Recovered/Resolved]

NARRATIVE: CASE EVENT DATE: 20160208
